FAERS Safety Report 25148430 (Version 1)
Quarter: 2025Q2

REPORT INFORMATION
  Report Type: Spontaneous
  Country: US (occurrence: US)
  Receive Date: 20250402
  Receipt Date: 20250402
  Transmission Date: 20250717
  Serious: Yes (Hospitalization)
  Sender: ROCHE
  Company Number: US-ROCHE-10000240966

PATIENT
  Age: 69 Year
  Sex: Female

DRUGS (1)
  1. CELLCEPT [Suspect]
     Active Substance: MYCOPHENOLATE MOFETIL
     Indication: Pemphigoid
     Dosage: TAKES 1500 MG IN THE MORNING AND 1500 MG AT NIGHT
     Route: 065
     Dates: start: 2021

REACTIONS (13)
  - COVID-19 [Unknown]
  - Asthenia [Unknown]
  - Gastrointestinal disorder [Not Recovered/Not Resolved]
  - Liver disorder [Not Recovered/Not Resolved]
  - Eating disorder [Not Recovered/Not Resolved]
  - Taste disorder [Not Recovered/Not Resolved]
  - Vomiting [Recovered/Resolved]
  - Ill-defined disorder [Recovered/Resolved]
  - Off label use [Unknown]
  - Gastrointestinal disorder [Unknown]
  - Ageusia [Not Recovered/Not Resolved]
  - Anosmia [Recovered/Resolved]
  - Taste disorder [Not Recovered/Not Resolved]

NARRATIVE: CASE EVENT DATE: 20210101
